FAERS Safety Report 19521280 (Version 1)
Quarter: 2021Q3

REPORT INFORMATION
  Report Type: Spontaneous
  Country: MY (occurrence: MY)
  Receive Date: 20210712
  Receipt Date: 20210712
  Transmission Date: 20211014
  Serious: Yes (Other)
  Sender: FDA-Public Use
  Company Number: MY-SUN PHARMACEUTICAL INDUSTRIES LTD-2021R1-303981

PATIENT
  Age: 44 Year
  Sex: Female

DRUGS (1)
  1. STORVAS [Suspect]
     Active Substance: ATORVASTATIN CALCIUM
     Indication: HYPERCHOLESTEROLAEMIA
     Dosage: 40 MILLIGRAM, DAILY
     Route: 048

REACTIONS (6)
  - Alanine aminotransferase increased [Recovering/Resolving]
  - Dyspnoea [Recovering/Resolving]
  - Cough [Recovering/Resolving]
  - Nausea [Recovering/Resolving]
  - Ocular icterus [Recovering/Resolving]
  - Blood alkaline phosphatase increased [Recovering/Resolving]
